FAERS Safety Report 11102374 (Version 2)
Quarter: 2016Q1

REPORT INFORMATION
  Report Type: Spontaneous
  Country: JP (occurrence: JP)
  Receive Date: 20150511
  Receipt Date: 20160307
  Transmission Date: 20160525
  Serious: Yes (Death)
  Sender: FDA-Public Use
  Company Number: JP-JNJFOC-20150321592

PATIENT
  Age: 83 Year
  Sex: Male

DRUGS (5)
  1. RANMARK [Concomitant]
     Active Substance: DENOSUMAB
     Indication: METASTASES TO BONE
     Route: 058
     Dates: start: 20130322, end: 20150320
  2. GONAX [Suspect]
     Active Substance: DEGARELIX
     Indication: PROSTATE CANCER
     Route: 058
     Dates: start: 20150320, end: 20150320
  3. OXYCONTIN [Concomitant]
     Active Substance: OXYCODONE HYDROCHLORIDE
     Indication: METASTASES TO BONE
     Route: 048
     Dates: start: 20130607, end: 20150330
  4. ZYTIGA [Suspect]
     Active Substance: ABIRATERONE ACETATE
     Indication: PROSTATE CANCER
     Route: 048
     Dates: start: 20141017, end: 20150330
  5. DECADRON [Concomitant]
     Active Substance: DEXAMETHASONE
     Indication: PROSTATE CANCER
     Route: 048
     Dates: start: 20081121, end: 20150330

REACTIONS (2)
  - Sepsis [Fatal]
  - Blood testosterone increased [Unknown]

NARRATIVE: CASE EVENT DATE: 20150320
